FAERS Safety Report 9331046 (Version 2)
Quarter: 2013Q2

REPORT INFORMATION
  Report Type: Spontaneous
  Country: US (occurrence: US)
  Receive Date: 20130605
  Receipt Date: 20130605
  Transmission Date: 20140414
  Serious: Yes (Other)
  Sender: FDA-Public Use
  Company Number: CHPA2013US008953

PATIENT
  Age: 88 Year
  Sex: Female

DRUGS (4)
  1. VOLTAREN GEL [Suspect]
     Indication: ARTHRITIS
     Dosage: UNK, UNK
     Route: 061
     Dates: start: 201305, end: 20130524
  2. VOLTAREN GEL [Suspect]
     Indication: BURSITIS
  3. HYDROCODEINE [Concomitant]
     Indication: PAIN
     Dosage: 0.5DF BID
     Route: 048
  4. HYDROCODEINE [Concomitant]
     Dosage: 1 UNK, Q6H

REACTIONS (10)
  - Neck pain [Recovered/Resolved]
  - Back pain [Recovered/Resolved]
  - Chest pain [Recovered/Resolved]
  - Panic attack [Recovered/Resolved]
  - Decreased appetite [Recovered/Resolved]
  - Abdominal discomfort [Recovered/Resolved]
  - Weight decreased [Recovered/Resolved]
  - Diarrhoea [Recovered/Resolved]
  - Pruritus [Recovered/Resolved]
  - Off label use [Unknown]
